FAERS Safety Report 19399912 (Version 1)
Quarter: 2021Q2

REPORT INFORMATION
  Report Type: Report from Study
  Country: US (occurrence: US)
  Receive Date: 20210610
  Receipt Date: 20210610
  Transmission Date: 20210717
  Serious: Yes (Hospitalization, Other)
  Sender: FDA-Public Use
  Company Number: US-B.I. PHARMACEUTICALS,INC./RIDGEFIELD-2021-BI-088461

PATIENT
  Sex: Female

DRUGS (1)
  1. OFEV [Suspect]
     Active Substance: NINTEDANIB
     Indication: IDIOPATHIC PULMONARY FIBROSIS
     Route: 048
     Dates: start: 20210301

REACTIONS (18)
  - Decreased appetite [Unknown]
  - Nausea [Recovered/Resolved with Sequelae]
  - Urinary tract infection [Unknown]
  - Dyspepsia [Not Recovered/Not Resolved]
  - Gastric pH decreased [Unknown]
  - Asthenia [Not Recovered/Not Resolved]
  - Pulmonary oedema [Unknown]
  - Weight decreased [Unknown]
  - Chest pain [Unknown]
  - Flatulence [Unknown]
  - Pulmonary thrombosis [Unknown]
  - Body temperature decreased [Unknown]
  - Diarrhoea [Unknown]
  - Chills [Unknown]
  - Scleroderma [Unknown]
  - Abdominal discomfort [Not Recovered/Not Resolved]
  - Eating disorder [Unknown]
  - Internal haemorrhage [Unknown]
